FAERS Safety Report 16768106 (Version 1)
Quarter: 2019Q3

REPORT INFORMATION
  Report Type: Spontaneous
  Country: AR (occurrence: AR)
  Receive Date: 20190903
  Receipt Date: 20190903
  Transmission Date: 20191005
  Serious: Yes (Hospitalization)
  Sender: FDA-Public Use
  Company Number: AR-GILEAD-2019-0416598

PATIENT
  Sex: Female

DRUGS (1)
  1. AMBRISENTAN [Suspect]
     Active Substance: AMBRISENTAN
     Indication: PULMONARY HYPERTENSION
     Dosage: UNK
     Route: 065

REACTIONS (6)
  - Cardiac assistance device user [Unknown]
  - Fatigue [Unknown]
  - Gait disturbance [Unknown]
  - Hypersensitivity [Unknown]
  - Sneezing [Unknown]
  - Cough [Unknown]
